FAERS Safety Report 15074688 (Version 1)
Quarter: 2018Q2

REPORT INFORMATION
  Report Type: Report from Study
  Country: US (occurrence: US)
  Receive Date: 20180627
  Receipt Date: 20180627
  Transmission Date: 20180711
  Serious: No
  Sender: FDA-Public Use
  Company Number: US-SAOL THERAPEUTICS-2017SAO01167

PATIENT
  Sex: Female

DRUGS (15)
  1. DROPERIDOL. [Suspect]
     Active Substance: DROPERIDOL
     Dosage: 90.45 ?G, \DAY
     Route: 037
     Dates: end: 20140902
  2. COMPOUNDED BACLOFEN [Suspect]
     Active Substance: BACLOFEN
     Dosage: 166.68 ?G, \DAY
     Route: 037
     Dates: start: 20140612
  3. BUPIVACAINE. [Suspect]
     Active Substance: BUPIVACAINE
     Dosage: 13.697 MG, \DAY
     Route: 037
     Dates: start: 20140902
  4. COMPOUNDED BACLOFEN [Suspect]
     Active Substance: BACLOFEN
     Dosage: 226.13 ?G, \DAY
     Route: 037
     Dates: end: 20140902
  5. DILAUDID [Suspect]
     Active Substance: HYDROMORPHONE HYDROCHLORIDE
     Dosage: 1.0001 MG, \DAY
     Route: 037
     Dates: start: 20140612
  6. BUPIVACAINE. [Suspect]
     Active Substance: BUPIVACAINE
     Dosage: 10.001 MG, \DAY
     Route: 037
     Dates: start: 20140612
  7. DILAUDID [Suspect]
     Active Substance: HYDROMORPHONE HYDROCHLORIDE
     Dosage: 1.3597 MG, \DAY
     Route: 037
     Dates: start: 20140902
  8. DROPERIDOL. [Suspect]
     Active Substance: DROPERIDOL
     Dosage: 91.31 ?G, \DAY
     Route: 037
     Dates: start: 20140902
  9. CLONIDINE. [Suspect]
     Active Substance: CLONIDINE
     Dosage: 91.31 ?G, \DAY
     Route: 037
     Dates: start: 20140902
  10. DILAUDID [Suspect]
     Active Substance: HYDROMORPHONE HYDROCHLORIDE
     Dosage: 1.3568 MG, \DAY
     Route: 037
     Dates: start: 20140612, end: 20140902
  11. DROPERIDOL. [Suspect]
     Active Substance: DROPERIDOL
     Dosage: 66.67 ?G, \DAY
     Route: 037
  12. COMPOUNDED BACLOFEN [Suspect]
     Active Substance: BACLOFEN
     Dosage: 228.28 ?G, \DAY
     Route: 037
     Dates: start: 20140902
  13. BUPIVACAINE. [Suspect]
     Active Substance: BUPIVACAINE
     Dosage: 13.568 MG, \DAY
     Route: 037
     Dates: start: 20140612, end: 20140902
  14. CLONIDINE. [Suspect]
     Active Substance: CLONIDINE
     Dosage: 66.67 ?G, \DAY
     Route: 037
     Dates: start: 20140612
  15. CLONIDINE. [Suspect]
     Active Substance: CLONIDINE
     Dosage: 90.45 ?G, \DAY
     Route: 037
     Dates: end: 20140902

REACTIONS (2)
  - Pain [Unknown]
  - Sedation [Recovered/Resolved]

NARRATIVE: CASE EVENT DATE: 20140902
